FAERS Safety Report 14432803 (Version 2)
Quarter: 2018Q1

REPORT INFORMATION
  Report Type: Spontaneous
  Country: DE (occurrence: DE)
  Receive Date: 20180124
  Receipt Date: 20180201
  Transmission Date: 20180509
  Serious: Yes (Other)
  Sender: FDA-Public Use
  Company Number: PHHY2018DE010374

PATIENT
  Age: 84 Year
  Sex: Male
  Weight: 82 kg

DRUGS (13)
  1. VALSARTAN/HCT [Concomitant]
     Active Substance: HYDROCHLOROTHIAZIDE\VALSARTAN
     Indication: HYPERTENSION
     Dosage: 160 MG, QD
     Route: 048
  2. PRAVASTATIN ACCORD [Concomitant]
     Active Substance: PRAVASTATIN
     Indication: PROPHYLAXIS
     Dosage: 20 MG, QD
     Route: 048
  3. DEXAMETHASONE. [Suspect]
     Active Substance: DEXAMETHASONE
     Indication: PLASMA CELL MYELOMA
     Dosage: 4 MG, UNK
     Route: 065
  4. VALSARTAN/HCT [Concomitant]
     Active Substance: HYDROCHLOROTHIAZIDE\VALSARTAN
     Dosage: 160 MILLIGRAM
     Route: 048
  5. REVLIMID [Suspect]
     Active Substance: LENALIDOMIDE
     Indication: PLASMA CELL MYELOMA
     Dosage: 25 MG, QD
     Route: 065
  6. PREDNISOLON-RATIOPHARM [Concomitant]
     Indication: THROMBOCYTOSIS
     Dosage: 50 MG, QD
     Route: 048
     Dates: start: 20170928, end: 20171001
  7. PREDNISOLON-RATIOPHARM [Concomitant]
     Dosage: 20 MG, QD
     Route: 048
     Dates: start: 20171001, end: 20171110
  8. QUERTO [Concomitant]
     Indication: RESPIRATORY FAILURE
     Dosage: 6.25 MG, QD
     Route: 048
  9. REVLIMID [Suspect]
     Active Substance: LENALIDOMIDE
     Dosage: 15 MG, UNK
     Route: 065
  10. XARELTO [Concomitant]
     Active Substance: RIVAROXABAN
     Indication: PROPHYLAXIS
     Dosage: 15 MG, QD
     Route: 048
  11. PREDNISOLONE. [Concomitant]
     Active Substance: PREDNISOLONE
     Indication: THROMBOCYTOSIS
     Dosage: 15 MG, QD
     Route: 048
     Dates: start: 20171111
  12. AMLODIPIN-RATIOPHARM [Concomitant]
     Indication: HYPERTENSION
     Dosage: 5 MG, QD
     Route: 048
  13. PAMIDRONAT GRY [Concomitant]
     Indication: PROPHYLAXIS
     Dosage: 60 MG, QMO
     Route: 041
     Dates: start: 20170623

REACTIONS (1)
  - Dermatitis allergic [Not Recovered/Not Resolved]

NARRATIVE: CASE EVENT DATE: 20170717
